FAERS Safety Report 24226131 (Version 6)
Quarter: 2025Q1

REPORT INFORMATION
  Report Type: Spontaneous
  Country: US (occurrence: US)
  Receive Date: 20240820
  Receipt Date: 20250320
  Transmission Date: 20250409
  Serious: Yes (Other)
  Sender: BLUEPRINT MEDICINES
  Company Number: US-Blueprint Medicines Corporation-4479

PATIENT
  Age: 73 Year
  Sex: Female

DRUGS (6)
  1. AYVAKIT [Suspect]
     Active Substance: AVAPRITINIB
     Indication: Systemic mastocytosis
     Route: 065
     Dates: start: 201803
  2. AYVAKIT [Suspect]
     Active Substance: AVAPRITINIB
     Indication: Advanced systemic mastocytosis
     Route: 048
     Dates: start: 20230124
  3. AYVAKIT [Suspect]
     Active Substance: AVAPRITINIB
     Indication: Myelofibrosis
     Route: 048
     Dates: start: 20230124
  4. AYVAKIT [Suspect]
     Active Substance: AVAPRITINIB
     Indication: Mastocytoma
     Route: 048
     Dates: start: 20231129
  5. OJJAARA [Suspect]
     Active Substance: MOMELOTINIB DIHYDROCHLORIDE MONOHYDRATE
     Indication: Systemic mastocytosis
     Route: 048
     Dates: start: 20231120
  6. LOSARTAN [Concomitant]
     Active Substance: LOSARTAN
     Indication: Product used for unknown indication
     Route: 065

REACTIONS (27)
  - Renal failure [Unknown]
  - Renal impairment [Not Recovered/Not Resolved]
  - Myelofibrosis [Not Recovered/Not Resolved]
  - Neuralgia [Unknown]
  - Back pain [Unknown]
  - Hypoaesthesia [Unknown]
  - Paraesthesia [Unknown]
  - Brain fog [Not Recovered/Not Resolved]
  - Glomerular filtration rate decreased [Not Recovered/Not Resolved]
  - Blood creatinine increased [Not Recovered/Not Resolved]
  - Chronic kidney disease [Unknown]
  - Neuropathy peripheral [Unknown]
  - Headache [Unknown]
  - Asthenia [Unknown]
  - Hypertension [Unknown]
  - Hypotension [Unknown]
  - Dizziness [Unknown]
  - Palpitations [Unknown]
  - Depressed mood [Unknown]
  - General physical health deterioration [Unknown]
  - Haemoglobin decreased [Unknown]
  - Dyspnoea [Unknown]
  - Cerebral disorder [Unknown]
  - Loss of personal independence in daily activities [Unknown]
  - Pain [Unknown]
  - Insomnia [Unknown]
  - Blood pressure inadequately controlled [Unknown]

NARRATIVE: CASE EVENT DATE: 20250201
